FAERS Safety Report 5835602-9 (Version None)
Quarter: 2008Q3

REPORT INFORMATION
  Report Type: 
  Country: None (occurrence: None)
  Receive Date: 20080804
  Receipt Date: 20080718
  Transmission Date: 20090109
  Serious: Yes (Hospitalization, Other)
  Sender: FDA-Public Use
  Company Number: 2008BI011665

PATIENT
  Sex: Female
  Weight: 127.0072 kg

DRUGS (21)
  1. TYSABRI [Suspect]
     Indication: MULTIPLE SCLEROSIS
     Dosage: 300 MG;QM;IV
     Route: 042
     Dates: start: 20071220, end: 20080306
  2. CHANTIX [Concomitant]
  3. ABILIFY [Concomitant]
  4. ADDERALL XR 30 [Concomitant]
  5. SYMBICORT [Concomitant]
  6. BACLOFEN [Concomitant]
  7. COMBIVENT [Concomitant]
  8. CYMBALTA [Concomitant]
  9. LEXAPRO [Concomitant]
  10. PROVIGIL [Concomitant]
  11. REQUIP [Concomitant]
  12. RESTORIL [Concomitant]
  13. ZONEGRAN [Concomitant]
  14. VICODIN [Concomitant]
  15. MOTRIN [Concomitant]
  16. NIACIN [Concomitant]
  17. IMITREX [Concomitant]
  18. CEPHALOSPORIN [Concomitant]
  19. VITAMIN B-12 [Concomitant]
  20. BENADRYL [Concomitant]
  21. METHYLPREDNISOLONE 16MG TAB [Concomitant]

REACTIONS (44)
  - ASTHENIA [None]
  - BLOOD ALKALINE PHOSPHATASE INCREASED [None]
  - BLOOD CALCIUM DECREASED [None]
  - BLOOD CHLORIDE INCREASED [None]
  - BLOOD GLUCOSE INCREASED [None]
  - BLOOD IRON DECREASED [None]
  - BRAIN NATRIURETIC PEPTIDE INCREASED [None]
  - BUNDLE BRANCH BLOCK [None]
  - CATHETER THROMBOSIS [None]
  - CHEST PAIN [None]
  - CHILLS [None]
  - COUGH [None]
  - CYSTITIS [None]
  - DEEP VEIN THROMBOSIS [None]
  - DERMATITIS ACNEIFORM [None]
  - DIZZINESS [None]
  - DYSPNOEA [None]
  - ELECTROCARDIOGRAM QT PROLONGED [None]
  - ELECTROCARDIOGRAM QT SHORTENED [None]
  - ERYTHEMA [None]
  - FEELING HOT [None]
  - GENERALISED OEDEMA [None]
  - HYPOKALAEMIA [None]
  - HYPOVOLAEMIA [None]
  - IMMUNOSUPPRESSION [None]
  - INTERNATIONAL NORMALISED RATIO DECREASED [None]
  - IRON DEFICIENCY [None]
  - LYMPHADENITIS [None]
  - MICROCYTIC ANAEMIA [None]
  - MUSCLE SPASMS [None]
  - NECK PAIN [None]
  - OEDEMA PERIPHERAL [None]
  - PAIN IN EXTREMITY [None]
  - PATHOGEN RESISTANCE [None]
  - PITTING OEDEMA [None]
  - PLATELET COUNT INCREASED [None]
  - PLEURITIC PAIN [None]
  - PULMONARY EMBOLISM [None]
  - PYELONEPHRITIS [None]
  - PYREXIA [None]
  - RENAL FAILURE ACUTE [None]
  - SINUSITIS [None]
  - WEIGHT DECREASED [None]
  - WHITE BLOOD CELL COUNT INCREASED [None]
